FAERS Safety Report 9350119 (Version 1)
Quarter: 2013Q2

REPORT INFORMATION
  Report Type: Spontaneous
  Country: JP (occurrence: JP)
  Receive Date: 20130616
  Receipt Date: 20130616
  Transmission Date: 20140414
  Serious: Yes (Hospitalization)
  Sender: FDA-Public Use
  Company Number: JP-009507513-1305JPN010887

PATIENT
  Age: 84 Year
  Sex: Female

DRUGS (4)
  1. ZETIA TABLETS 10MG [Suspect]
     Indication: LOW DENSITY LIPOPROTEIN INCREASED
     Dosage: 1 DF, QD
     Route: 048
     Dates: start: 20130225, end: 20130426
  2. ARICEPT [Concomitant]
     Dosage: 5 MG, QD
     Route: 048
     Dates: start: 20081219
  3. TICPILONE [Concomitant]
     Indication: CEREBRAL INFARCTION
     Dosage: 100 MG, BID
     Route: 048
     Dates: start: 20080113
  4. DEPAS [Concomitant]
     Indication: INSOMNIA
     Dosage: 0.5 MG, QD
     Route: 048
     Dates: start: 20080131

REACTIONS (3)
  - Blood lactate dehydrogenase increased [Recovering/Resolving]
  - Aspartate aminotransferase increased [Recovering/Resolving]
  - Alanine aminotransferase increased [Recovering/Resolving]
